FAERS Safety Report 6502127-7 (Version None)
Quarter: 2009Q4

REPORT INFORMATION
  Report Type: 
  Country: None (occurrence: None)
  Receive Date: 20091214
  Receipt Date: 20091201
  Transmission Date: 20100525
  Serious: Yes (Other)
  Sender: FDA-Public Use
  Company Number: 310003L09ESP

PATIENT
  Sex: Female

DRUGS (4)
  1. GONAL-F [Suspect]
     Indication: ASSISTED FERTILISATION
     Dosage: 2250 IU, OTHER
     Route: 050
  2. LUVERIS [Suspect]
     Indication: ASSISTED FERTILISATION
     Dosage: 750 IU, OTHER
     Route: 050
  3. CETROTIDE (CETRORELIX ACETATE FOR INJECTION) (CETRORELIX ACETATE) [Suspect]
     Indication: ASSISTED FERTILISATION
     Dosage: OTHER
     Route: 050
  4. OVITRELLE (CHORIOGONADOTROPIN ALFA) [Suspect]
     Indication: ASSISTED FERTILISATION
     Dosage: OTHER
     Route: 050

REACTIONS (5)
  - CAESAREAN SECTION [None]
  - CONGENITAL HYDROCEPHALUS [None]
  - MATERNAL DRUGS AFFECTING FOETUS [None]
  - PREMATURE BABY [None]
  - SMALL FOR DATES BABY [None]
